FAERS Safety Report 9393819 (Version 1)
Quarter: 2013Q3

REPORT INFORMATION
  Report Type: Spontaneous
  Country: JP (occurrence: JP)
  Receive Date: 20130710
  Receipt Date: 20130710
  Transmission Date: 20140515
  Serious: Yes (Other)
  Sender: FDA-Public Use
  Company Number: JP-TEVA-416792ISR

PATIENT
  Age: 60 Year
  Sex: Male

DRUGS (16)
  1. CLARITHROMYCIN [Suspect]
     Indication: FOLLICLE CENTRE LYMPHOMA, FOLLICULAR GRADE I, II, III RECURRENT
     Dosage: PART OF CAMP-C THERAPY
     Route: 065
  2. PREDNISOLONE [Suspect]
     Indication: FOLLICLE CENTRE LYMPHOMA, FOLLICULAR GRADE I, II, III STAGE III
     Dosage: 6 CYCLES OF CHOP CHEMOTHERAPY
     Route: 065
  3. PREDNISOLONE [Suspect]
     Indication: FOLLICLE CENTRE LYMPHOMA, FOLLICULAR GRADE I, II, III RECURRENT
     Dosage: 6 CYCLES OF R-CHOP CHEMOTHERAPY
     Route: 065
  4. PREDNISOLONE [Suspect]
     Indication: FOLLICLE CENTRE LYMPHOMA, FOLLICULAR GRADE I, II, III RECURRENT
     Dosage: FOR 1W, THEN 10MG 2X DAILY; PART OF CAMP-C THERAPY
     Route: 065
  5. PREDNISOLONE [Suspect]
     Indication: FOLLICLE CENTRE LYMPHOMA, FOLLICULAR GRADE I, II, III RECURRENT
     Dosage: FOR 1W, THEN 5MG 3X DAILY; PART OF CAMP-C THERAPY
     Route: 065
  6. PREDNISOLONE [Suspect]
     Indication: FOLLICLE CENTRE LYMPHOMA, FOLLICULAR GRADE I, II, III RECURRENT
     Dosage: FOR 2W, THEN 5MG 2X DAILY; PART OF CAMP-C THERAPY
     Route: 065
  7. PREDNISOLONE [Suspect]
     Indication: FOLLICLE CENTRE LYMPHOMA, FOLLICULAR GRADE I, II, III RECURRENT
     Dosage: 10 MILLIGRAM DAILY; PART OF CAMP-C THERAPY
     Route: 065
  8. CYCLOPHOSPHAMIDE [Suspect]
     Indication: FOLLICLE CENTRE LYMPHOMA, FOLLICULAR GRADE I, II, III STAGE III
     Dosage: 6 CYCLES OF CHOP CHEMOTHERAPY
     Route: 065
  9. CYCLOPHOSPHAMIDE [Suspect]
     Indication: FOLLICLE CENTRE LYMPHOMA, FOLLICULAR GRADE I, II, III RECURRENT
     Dosage: 6 CYCLES OF R-CHOP CHEMOTHERAPY
     Route: 065
  10. CYCLOPHOSPHAMIDE [Suspect]
     Indication: FOLLICLE CENTRE LYMPHOMA, FOLLICULAR GRADE I, II, III RECURRENT
     Dosage: 50 MILLIGRAM DAILY; PART OF CAMP-C THERAPY
     Route: 065
  11. DOXORUBICIN [Suspect]
     Indication: FOLLICLE CENTRE LYMPHOMA, FOLLICULAR GRADE I, II, III STAGE III
     Dosage: 6 CYCLES OF CHOP CHEMOTHERAPY
     Route: 065
  12. DOXORUBICIN [Suspect]
     Indication: FOLLICLE CENTRE LYMPHOMA, FOLLICULAR GRADE I, II, III RECURRENT
     Dosage: 6 CYCLES OF R-CHOP CHEMOTHERAPY
     Route: 065
  13. VINCRISTINE [Suspect]
     Indication: FOLLICLE CENTRE LYMPHOMA, FOLLICULAR GRADE I, II, III STAGE III
     Dosage: 6 CYCLES OF CHOP CHEMOTHERAPY
     Route: 065
  14. VINCRISTINE [Suspect]
     Indication: FOLLICLE CENTRE LYMPHOMA, FOLLICULAR GRADE I, II, III RECURRENT
     Dosage: 6 CYCLES OF R-CHOP CHEMOTHERAPY
     Route: 065
  15. RITUXIMAB [Suspect]
     Indication: FOLLICLE CENTRE LYMPHOMA, FOLLICULAR GRADE I, II, III RECURRENT
     Dosage: 6 CYCLES OF R-CHOP CHEMOTHERAPY; THEN 2 CYCLES OF MONOTHERAPY
     Route: 065
  16. RITUXIMAB [Suspect]
     Indication: FOLLICLE CENTRE LYMPHOMA, FOLLICULAR GRADE I, II, III RECURRENT
     Dosage: 2 CYCLES OF MONOTHERAPY
     Route: 065

REACTIONS (3)
  - Myelodysplastic syndrome [Unknown]
  - Pneumonia [Recovering/Resolving]
  - Thrombocytopenia [Unknown]
